FAERS Safety Report 18081770 (Version 2)
Quarter: 2020Q3

REPORT INFORMATION
  Report Type: Spontaneous
  Country: US (occurrence: US)
  Receive Date: 20200728
  Receipt Date: 20200810
  Transmission Date: 20201103
  Serious: Yes (Other)
  Sender: FDA-Public Use
  Company Number: US-ROCHE-2643992

PATIENT
  Age: 53 Year
  Sex: Male

DRUGS (9)
  1. OCREVUS [Suspect]
     Active Substance: OCRELIZUMAB
     Route: 042
     Dates: start: 20181214
  2. ZYRTEC (UNITED STATES) [Concomitant]
  3. WARFARIN [Concomitant]
     Active Substance: WARFARIN
     Indication: ANTIPHOSPHOLIPID SYNDROME
     Dates: start: 201610
  4. HYDROCHLOROTHIAZIDE. [Concomitant]
     Active Substance: HYDROCHLOROTHIAZIDE
  5. PEPCID [Concomitant]
     Active Substance: FAMOTIDINE
  6. VIAGRA [Concomitant]
     Active Substance: SILDENAFIL CITRATE
  7. TYLENOL [Concomitant]
     Active Substance: ACETAMINOPHEN
  8. OCREVUS [Suspect]
     Active Substance: OCRELIZUMAB
     Indication: RELAPSING MULTIPLE SCLEROSIS
     Dosage: INDUCTION DOSE; 300 MG FOR 2 DOSES 2 WEEKS APART
     Route: 042
  9. INSULIN [Concomitant]
     Active Substance: INSULIN NOS

REACTIONS (1)
  - SARS-CoV-2 test positive [Unknown]

NARRATIVE: CASE EVENT DATE: 20200706
